FAERS Safety Report 17790552 (Version 1)
Quarter: 2020Q2

REPORT INFORMATION
  Report Type: Spontaneous
  Country: CN (occurrence: CN)
  Receive Date: 20200514
  Receipt Date: 20200514
  Transmission Date: 20200714
  Serious: Yes (Hospitalization)
  Sender: FDA-Public Use
  Company Number: CN-NOVOPROD-727622

PATIENT
  Age: 29 Year
  Sex: Male
  Weight: 85 kg

DRUGS (4)
  1. VICTOZA [Suspect]
     Active Substance: LIRAGLUTIDE
     Indication: TYPE 2 DIABETES MELLITUS
     Dosage: 0.6 MG, QD
     Route: 058
     Dates: start: 20200414
  2. VICTOZA [Suspect]
     Active Substance: LIRAGLUTIDE
     Dosage: 1.2 MG, QD
     Route: 058
     Dates: start: 20200417, end: 20200421
  3. PIOGLITAZONE AND METFORMIN [Suspect]
     Active Substance: METFORMIN HYDROCHLORIDE\PIOGLITAZONE HYDROCHLORIDE
     Indication: TYPE 2 DIABETES MELLITUS
     Dosage: 1 DF, QD
     Route: 048
     Dates: start: 20200413, end: 20200420
  4. ACIPIMOX [Suspect]
     Active Substance: ACIPIMOX
     Indication: HYPERLIPIDAEMIA
     Dosage: 0.25 G, TID
     Route: 048
     Dates: start: 20200413, end: 20200420

REACTIONS (1)
  - Jaundice acholuric [Recovering/Resolving]

NARRATIVE: CASE EVENT DATE: 20200418
